FAERS Safety Report 9981377 (Version 1)
Quarter: 2014Q1

REPORT INFORMATION
  Report Type: Spontaneous
  Country: US (occurrence: None)
  Receive Date: 20140306
  Receipt Date: 20140306
  Transmission Date: 20141002
  Serious: Yes (Disabling, Other)
  Sender: FDA-Public Use
  Company Number: None

PATIENT
  Age: 52 Year
  Sex: Female
  Weight: 64.41 kg

DRUGS (2)
  1. ATENOLOL 50 MG [Suspect]
     Indication: TACHYCARDIA
     Route: 048
     Dates: start: 20131201, end: 20140225
  2. ATENOLOL 50 MG [Suspect]
     Indication: VENTRICULAR EXTRASYSTOLES
     Route: 048
     Dates: start: 20131201, end: 20140225

REACTIONS (7)
  - Drug dose omission [None]
  - Tremor [None]
  - Ventricular extrasystoles [None]
  - Dizziness [None]
  - Electrocardiogram T wave inversion [None]
  - Product quality issue [None]
  - Product substitution issue [None]
